FAERS Safety Report 4391289-6 (Version None)
Quarter: 2004Q2

REPORT INFORMATION
  Report Type: 
  Country: None (occurrence: None)
  Receive Date: 20040621
  Receipt Date: 20031107
  Transmission Date: 20050107
  Serious: Yes (Hospitalization, Other)
  Sender: FDA-Public Use
  Company Number: USA-2003-0010720

PATIENT

DRUGS (1)
  1. OXYCONTIN [Suspect]
     Route: 064

REACTIONS (1)
  - DRUG DEPENDENCE [None]
